FAERS Safety Report 12145487 (Version 1)
Quarter: 2016Q1

REPORT INFORMATION
  Report Type: Spontaneous
  Country: US (occurrence: None)
  Receive Date: 20160303
  Receipt Date: 20160303
  Transmission Date: 20160526
  Serious: Yes (Hospitalization, Other)
  Sender: FDA-Public Use
  Company Number: None

PATIENT
  Age: 65 Year
  Sex: Female
  Weight: 93.6 kg

DRUGS (19)
  1. DILTIAZEM [Concomitant]
     Active Substance: DILTIAZEM
  2. EZETEMIBE [Concomitant]
  3. FISH OIL [Concomitant]
     Active Substance: FISH OIL
  4. GLIMEPIRIDE. [Concomitant]
     Active Substance: GLIMEPIRIDE
  5. ASCORBIC ACID. [Concomitant]
     Active Substance: ASCORBIC ACID
  6. BUDESONIDE. [Concomitant]
     Active Substance: BUDESONIDE
  7. XOLAIR [Suspect]
     Active Substance: OMALIZUMAB
     Indication: ASTHMA
     Route: 058
  8. METFORMIN [Concomitant]
     Active Substance: METFORMIN HYDROCHLORIDE
  9. VALSARTAN. [Concomitant]
     Active Substance: VALSARTAN
  10. VITAMIN E [Concomitant]
     Active Substance: .ALPHA.-TOCOPHEROL
  11. BIOTIN [Concomitant]
     Active Substance: BIOTIN
  12. NEBULIZED ALBUTEROL [Concomitant]
     Active Substance: ALBUTEROL
  13. FUROSEMIDE. [Concomitant]
     Active Substance: FUROSEMIDE
  14. HYDROCHLOROTHIAZIDE. [Concomitant]
     Active Substance: HYDROCHLOROTHIAZIDE
  15. VITAMIN B COMPLEX W/ C [Concomitant]
  16. LITHIUM CARBONATE. [Concomitant]
     Active Substance: LITHIUM CARBONATE
  17. ESTROGENS CONJUGATED [Concomitant]
     Active Substance: ESTROGENS, CONJUGATED
  18. ALBUTEROL. [Concomitant]
     Active Substance: ALBUTEROL
  19. ASPIRIN. [Concomitant]
     Active Substance: ASPIRIN

REACTIONS (3)
  - Dialysis [None]
  - Renal failure [None]
  - Nephropathy toxic [None]

NARRATIVE: CASE EVENT DATE: 20160227
